FAERS Safety Report 25213825 (Version 1)
Quarter: 2025Q2

REPORT INFORMATION
  Report Type: Spontaneous
  Country: US (occurrence: None)
  Receive Date: 20250417
  Receipt Date: 20250417
  Transmission Date: 20250716
  Serious: Yes (Hospitalization)
  Sender: FDA-CTU
  Company Number: None

PATIENT
  Age: 81 Year
  Sex: Male
  Weight: 58.5 kg

DRUGS (5)
  1. LEUCOVORIN [Suspect]
     Active Substance: LEUCOVORIN\LEUCOVORIN CALCIUM
  2. FLUOROURACIL [Suspect]
     Active Substance: FLUOROURACIL
  3. OXALIPLATIN [Suspect]
     Active Substance: OXALIPLATIN
  4. IRINOTECAN [Suspect]
     Active Substance: IRINOTECAN
  5. ASPIRIN [Concomitant]
     Active Substance: ASPIRIN

REACTIONS (9)
  - Nausea [None]
  - Fall [None]
  - International normalised ratio increased [None]
  - Scalp haematoma [None]
  - Haematemesis [None]
  - Mallory-Weiss syndrome [None]
  - Hiatus hernia [None]
  - Tumour of ampulla of Vater [None]
  - Upper gastrointestinal haemorrhage [None]

NARRATIVE: CASE EVENT DATE: 20250204
